FAERS Safety Report 5959769-7 (Version None)
Quarter: 2008Q4

REPORT INFORMATION
  Report Type: 
  Country: None (occurrence: None)
  Receive Date: 20081119
  Receipt Date: 20081119
  Transmission Date: 20090506
  Serious: Yes (Life-Threatening, Hospitalization)
  Sender: FDA-Public Use
  Company Number: None

PATIENT
  Age: 82 Year
  Sex: Male
  Weight: 94 kg

DRUGS (10)
  1. WARFARIN SODIUM [Suspect]
     Indication: THROMBOSIS PROPHYLAXIS
     Dosage: 7 MG PO QD
     Route: 048
  2. GLIPIZIDE [Concomitant]
  3. HYDRALAZINE HCL [Concomitant]
  4. FERROUS [Concomitant]
  5. ISORDIL [Concomitant]
  6. POTASSIUM CHLORIDE [Concomitant]
  7. LASIX [Concomitant]
  8. LIPITOR [Concomitant]
  9. METOLAZONE [Concomitant]
  10. NIASPAN [Concomitant]

REACTIONS (4)
  - CHEST PAIN [None]
  - HAEMATOCHEZIA [None]
  - HAEMOGLOBIN DECREASED [None]
  - INTERNATIONAL NORMALISED RATIO INCREASED [None]
